FAERS Safety Report 4607980-X (Version None)
Quarter: 2005Q2

REPORT INFORMATION
  Report Type: 
  Country: None (occurrence: None)
  Receive Date: 20050303
  Receipt Date: 20041101
  Transmission Date: 20051028
  Serious: No
  Sender: FDA-Public Use
  Company Number: 210103

PATIENT
  Age: 28 Year
  Sex: Female
  Weight: 59 kg

DRUGS (5)
  1. XOLAIR [Suspect]
     Indication: ASTHMA
     Dates: start: 20040101
  2. NORVASC [Concomitant]
  3. ZYRTEC [Concomitant]
  4. FORADIL [Concomitant]
  5. EPIPEN (EPINEPHRINE) [Concomitant]

REACTIONS (2)
  - INFLUENZA LIKE ILLNESS [None]
  - PAIN [None]
